FAERS Safety Report 23921526 (Version 1)
Quarter: 2024Q2

REPORT INFORMATION
  Report Type: Spontaneous
  Country: CN (occurrence: CN)
  Receive Date: 20240530
  Receipt Date: 20240530
  Transmission Date: 20240716
  Serious: Yes (Hospitalization, Other)
  Sender: FDA-Public Use
  Company Number: CN-009507513-2405CHN008543

PATIENT
  Age: 58 Year
  Sex: Male

DRUGS (2)
  1. KEYTRUDA [Suspect]
     Active Substance: PEMBROLIZUMAB
     Indication: Clear cell renal cell carcinoma
     Dosage: 200 MG, ONCE PER 21 DAY
     Route: 041
     Dates: start: 20220615, end: 20240404
  2. KEYTRUDA [Suspect]
     Active Substance: PEMBROLIZUMAB
     Indication: Metastatic neoplasm

REACTIONS (2)
  - Interstitial lung disease [Recovering/Resolving]
  - Bronchiectasis [Unknown]

NARRATIVE: CASE EVENT DATE: 20240425
